FAERS Safety Report 19642627 (Version 1)
Quarter: 2021Q3

REPORT INFORMATION
  Report Type: Report from Study
  Country: IT (occurrence: IT)
  Receive Date: 20210730
  Receipt Date: 20210730
  Transmission Date: 20211014
  Serious: Yes (Other)
  Sender: FDA-Public Use
  Company Number: IT-CELGENEUS-ITA-20210600351

PATIENT
  Age: 72 Year
  Sex: Male
  Weight: 70 kg

DRUGS (4)
  1. EXJADE [Concomitant]
     Active Substance: DEFERASIROX
     Indication: CHELATION THERAPY
     Dosage: 1170 MILLIGRAM
     Route: 065
     Dates: start: 2018, end: 20210409
  2. MEDROL [Concomitant]
     Active Substance: METHYLPREDNISOLONE
     Indication: SPINAL OSTEOARTHRITIS
     Dosage: 4 MILLIGRAM
     Route: 048
     Dates: start: 2018, end: 20210409
  3. LUSPATERCEPT. [Suspect]
     Active Substance: LUSPATERCEPT
     Indication: MYELODYSPLASTIC SYNDROME
     Dosage: 1 MILLIGRAM/KILOGRAM
     Route: 058
     Dates: start: 20160817
  4. LUSPATERCEPT. [Suspect]
     Active Substance: LUSPATERCEPT
     Dosage: 1.75 MILLIGRAM/KILOGRAM
     Route: 058
     Dates: end: 20180409

REACTIONS (1)
  - Myelodysplastic syndrome [Recovered/Resolved]

NARRATIVE: CASE EVENT DATE: 20201007
